FAERS Safety Report 5199720-3 (Version None)
Quarter: 2007Q1

REPORT INFORMATION
  Report Type: 
  Country: None (occurrence: None)
  Receive Date: 20070102
  Receipt Date: 20070102
  Transmission Date: 20070707
  Serious: Yes (Death)
  Sender: FDA-Public Use
  Company Number: None

PATIENT
  Age: 63 Year
  Sex: Male
  Weight: 75.7507 kg

DRUGS (1)
  1. CISAPRIDE [Suspect]

REACTIONS (1)
  - OESOPHAGEAL CARCINOMA [None]
